FAERS Safety Report 6512451-X (Version None)
Quarter: 2009Q4

REPORT INFORMATION
  Report Type: 
  Country: None (occurrence: None)
  Receive Date: 20091222
  Receipt Date: 20091217
  Transmission Date: 20100525
  Serious: Yes (Hospitalization)
  Sender: FDA-Public Use
  Company Number: FR-ELI_LILLY_AND_COMPANY-FR200911002431

PATIENT
  Age: 58 Year
  Sex: Male
  Weight: 66 kg

DRUGS (6)
  1. FORTEO [Suspect]
     Indication: OSTEOPOROSIS
     Dosage: 20 UG, DAILY (1/D)
     Route: 058
     Dates: start: 20090224
  2. PARACETAMOL [Concomitant]
     Indication: PAIN
     Dosage: 1 G, 4/D
     Route: 048
  3. TRAMADOL HCL [Concomitant]
     Indication: PAIN
     Dosage: 200 MG, 2/D
     Route: 048
  4. INIPOMP [Concomitant]
     Indication: ABDOMINAL PAIN UPPER
     Dosage: 40 MG, DAILY (1/D)
     Route: 048
  5. SYMBICORT [Concomitant]
     Indication: ASTHMA
     Dosage: UNK, UNKNOWN
     Route: 055
  6. FUROSEMIDE [Concomitant]
     Indication: HYPERTENSION
     Dosage: 40 MG, DAILY (1/D)
     Route: 048

REACTIONS (1)
  - NECROSIS [None]
